FAERS Safety Report 10890527 (Version 3)
Quarter: 2015Q2

REPORT INFORMATION
  Report Type: Spontaneous
  Country: US (occurrence: US)
  Receive Date: 20150305
  Receipt Date: 20150410
  Transmission Date: 20150821
  Serious: Yes (Other)
  Sender: FDA-Public Use
  Company Number: US-SA-2015SA026871

PATIENT
  Age: 73 Year
  Sex: Male
  Weight: 117 kg

DRUGS (2)
  1. LANTUS SOLOSTAR [Suspect]
     Active Substance: INSULIN GLARGINE
     Indication: TYPE 2 DIABETES MELLITUS
     Dosage: TREATMENT START DATE: 6-7 YEARS AGO DOSE:30 UNIT(S)
     Route: 065
     Dates: start: 20060803
  2. SOLOSTAR [Suspect]
     Active Substance: DEVICE
     Indication: TYPE 2 DIABETES MELLITUS
     Dosage: TREATMENT START DATE: 6-7 YEARS AGO
     Dates: start: 20060803

REACTIONS (3)
  - Injection site pain [Recovered/Resolved]
  - Injection site injury [Unknown]
  - Malignant neoplasm of eye [Unknown]
